FAERS Safety Report 4504244-X (Version None)
Quarter: 2004Q4

REPORT INFORMATION
  Report Type: 
  Country: None (occurrence: None)
  Receive Date: 20041116
  Receipt Date: 20041104
  Transmission Date: 20050328
  Serious: Yes (Death)
  Sender: FDA-Public Use
  Company Number: 2004087966

PATIENT
  Sex: Male

DRUGS (1)
  1. FRESHBURST LISTERINE MOUTHWAS (MENTHOL, METHYL SALICYLATE, EUCALYPTOL [Suspect]
     Dosage: ORAL TOPICAL
     Route: 048

REACTIONS (1)
  - DIABETIC VASCULAR DISORDER [None]
